FAERS Safety Report 7999791-2 (Version None)
Quarter: 2011Q4

REPORT INFORMATION
  Report Type: 
  Country: None (occurrence: None)
  Receive Date: 20111222
  Receipt Date: 20111214
  Transmission Date: 20120403
  Serious: Yes (Hospitalization)
  Sender: FDA-Public Use
  Company Number: US-BIOGENIDEC-2011BI047241

PATIENT
  Age: 36 Year
  Sex: Female

DRUGS (13)
  1. MEPERIDINE HCL [Concomitant]
     Route: 048
  2. MULTIPLE VITAMINS [Concomitant]
     Route: 048
  3. SUMATRIPTAN [Concomitant]
     Route: 048
  4. LAMOTRIGINE [Concomitant]
     Route: 048
     Dates: start: 20110409
  5. TIZANIDINE HCL [Concomitant]
     Indication: MUSCLE SPASMS
     Route: 048
  6. ZOLOFT [Concomitant]
     Route: 048
  7. AVELOX [Concomitant]
     Route: 048
  8. TIZANIDINE HCL [Concomitant]
     Route: 048
  9. ENABLEX [Concomitant]
     Indication: POLLAKIURIA
     Route: 048
  10. PROPRANOLOL [Concomitant]
     Indication: ANXIETY
     Route: 048
  11. TYSABRI [Suspect]
     Indication: MULTIPLE SCLEROSIS
     Route: 042
     Dates: start: 20071017
  12. LAMOTRIGINE [Concomitant]
     Indication: CONVULSION
     Route: 048
     Dates: end: 20110407
  13. NOVOLOG [Concomitant]
     Indication: DIABETES MELLITUS
     Route: 058

REACTIONS (1)
  - CONVULSION [None]
